FAERS Safety Report 6036244-5 (Version None)
Quarter: 2009Q1

REPORT INFORMATION
  Report Type: 
  Country: None (occurrence: None)
  Receive Date: 20090113
  Receipt Date: 20090106
  Transmission Date: 20090719
  Serious: Yes (Other)
  Sender: FDA-Public Use
  Company Number: BR-PFIZER INC-2008093788

PATIENT

DRUGS (2)
  1. LIPITOR [Suspect]
     Indication: BLOOD CHOLESTEROL INCREASED
     Route: 048
  2. LIPITOR [Suspect]
     Indication: ANGINA PECTORIS

REACTIONS (5)
  - ABASIA [None]
  - BACK PAIN [None]
  - CHEST PAIN [None]
  - MALAISE [None]
  - PAIN [None]
